FAERS Safety Report 7017412-2 (Version None)
Quarter: 2010Q3

REPORT INFORMATION
  Report Type: 
  Country: None (occurrence: None)
  Receive Date: 20100928
  Receipt Date: 20100916
  Transmission Date: 20110219
  Serious: Yes (Disabling)
  Sender: FDA-Public Use
  Company Number: GB-TEVA-249010ISR

PATIENT
  Sex: Male

DRUGS (7)
  1. AMLODIPINE [Suspect]
     Route: 048
  2. LOSARTAN POTASSIUM [Suspect]
     Route: 048
  3. MIRTAZAPINE [Suspect]
     Route: 048
  4. ACYCLOVIR [Suspect]
     Route: 048
  5. CEPHALEXIN [Suspect]
     Route: 048
  6. CO-TRIMOXAZOL (SULPHAMETHOXZOLE/TRIMETHOPRIM) [Suspect]
     Dosage: 480MG?
     Route: 048
  7. RANITIDINE [Suspect]
     Route: 048

REACTIONS (3)
  - ANAEMIA [None]
  - ARTHRALGIA [None]
  - MYALGIA [None]
